FAERS Safety Report 8678346 (Version 2)
Quarter: 2012Q4

REPORT INFORMATION
  Report Type: 
  Country: JP (occurrence: JP)
  Receive Date: 20120723
  Receipt Date: 20121005
  Transmission Date: 20130627
  Serious: Yes (Other)
  Sender: FDA-Public Use
  Company Number: JP-ASTRAZENECA-2012SE50103

PATIENT
  Age: 84 Year
  Sex: Male

DRUGS (3)
  1. BLOPRESS [Suspect]
     Indication: HYPERTENSION
     Route: 048
     Dates: start: 20120626, end: 20120626
  2. BLOPRESS [Suspect]
     Indication: HYPERTENSION
     Route: 048
     Dates: start: 20120703, end: 20120703
  3. ADALAT [Concomitant]
     Route: 048
     Dates: start: 20120703, end: 20120703

REACTIONS (1)
  - Blood pressure decreased [Recovered/Resolved]
